FAERS Safety Report 19674989 (Version 4)
Quarter: 2021Q4

REPORT INFORMATION
  Report Type: Spontaneous
  Country: US (occurrence: US)
  Receive Date: 20210809
  Receipt Date: 20211214
  Transmission Date: 20220303
  Serious: Yes (Other)
  Sender: FDA-Public Use
  Company Number: US-AMGEN-USASP2021119116

PATIENT
  Age: 56 Year
  Sex: Female
  Weight: 58.96 kg

DRUGS (1)
  1. PROLIA [Suspect]
     Active Substance: DENOSUMAB
     Indication: Osteoporosis postmenopausal
     Dosage: 60 MILLIGRAM, Q6MO
     Route: 058
     Dates: start: 20120120

REACTIONS (9)
  - Fibula fracture [Unknown]
  - Tibia fracture [Unknown]
  - Femur fracture [Unknown]
  - Fall [Unknown]
  - Impaired healing [Unknown]
  - Inappropriate schedule of product administration [Unknown]
  - Overdose [Unknown]
  - Product communication issue [Unknown]
  - Fracture delayed union [Unknown]

NARRATIVE: CASE EVENT DATE: 20201016
